FAERS Safety Report 11784318 (Version 1)
Quarter: 2015Q4

REPORT INFORMATION
  Report Type: Spontaneous
  Country: None (occurrence: US)
  Receive Date: 20151128
  Receipt Date: 20151128
  Transmission Date: 20160305
  Serious: Yes (Hospitalization)
  Sender: FDA-Public Use
  Company Number: T-2015-118

PATIENT
  Age: 32 Year
  Sex: Female

DRUGS (14)
  1. CLONAZEPAM. [Concomitant]
     Active Substance: CLONAZEPAM
  2. FLUVOXAMINE MALEATE. [Concomitant]
     Active Substance: FLUVOXAMINE MALEATE
  3. LUVOX CR [Concomitant]
     Active Substance: FLUVOXAMINE MALEATE
  4. QUETIAPINE FUMARATE. [Concomitant]
     Active Substance: QUETIAPINE FUMARATE
  5. VITAMIN B6 [Concomitant]
     Active Substance: PYRIDOXINE HYDROCHLORIDE
  6. PRIMIDONE. [Concomitant]
     Active Substance: PRIMIDONE
  7. VITAMIN B12 [Concomitant]
     Active Substance: CYANOCOBALAMIN
  8. FOLIC ACID. [Concomitant]
     Active Substance: FOLIC ACID
  9. SEROQUEL [Concomitant]
     Active Substance: QUETIAPINE FUMARATE
  10. CYSTADANE [Suspect]
     Active Substance: BETAINE
     Indication: VITAMIN B12 DEFICIENCY
  11. ARIPIPRAZOLE. [Concomitant]
     Active Substance: ARIPIPRAZOLE
  12. KLONOPIN [Concomitant]
     Active Substance: CLONAZEPAM
  13. MYSOLINE [Concomitant]
     Active Substance: PRIMIDONE
  14. ABILIFY [Concomitant]
     Active Substance: ARIPIPRAZOLE

REACTIONS (7)
  - Abnormal behaviour [None]
  - Dizziness [None]
  - Bacterial infection [None]
  - Oedema peripheral [None]
  - Incontinence [None]
  - Haematemesis [None]
  - Overdose [None]
